FAERS Safety Report 6069800-9 (Version None)
Quarter: 2009Q1

REPORT INFORMATION
  Report Type: 
  Country: None (occurrence: None)
  Receive Date: 20090204
  Receipt Date: 20090204
  Transmission Date: 20090719
  Serious: Yes (Life-Threatening)
  Sender: FDA-Public Use
  Company Number: None

PATIENT
  Age: 73 Year
  Sex: Male
  Weight: 205 kg

DRUGS (1)
  1. FLUOXETINE [Suspect]
     Indication: PANIC ATTACK
     Dosage: 20 MG 1/DAILY
     Dates: start: 20090126, end: 20090126

REACTIONS (7)
  - CARDIAC DISORDER [None]
  - CONFUSIONAL STATE [None]
  - DRUG WITHDRAWAL SYNDROME [None]
  - DRY MOUTH [None]
  - FATIGUE [None]
  - HEART RATE DECREASED [None]
  - MOVEMENT DISORDER [None]
